FAERS Safety Report 8942208 (Version 1)
Quarter: 2012Q4

REPORT INFORMATION
  Report Type: Spontaneous
  Country: US (occurrence: None)
  Receive Date: 20121129
  Receipt Date: 20121129
  Transmission Date: 20130627
  Serious: No
  Sender: FDA-Public Use
  Company Number: None

PATIENT
  Age: 53 Year
  Sex: Male

DRUGS (4)
  1. PEGASYS [Suspect]
     Indication: CHRONIC HEPATITIS C
     Route: 058
     Dates: start: 20120816
  2. PEGASYS [Suspect]
     Indication: HEPATIC COMA
     Route: 058
     Dates: start: 20120816
  3. RIBAPAK [Suspect]
     Indication: CHRONIC HEPATITIS C
     Route: 048
     Dates: start: 20120816
  4. RIBAPAK [Suspect]
     Indication: HEPATIC COMA
     Route: 048
     Dates: start: 20120816

REACTIONS (3)
  - Anxiety [None]
  - Thinking abnormal [None]
  - Insomnia [None]
